FAERS Safety Report 8731208 (Version 2)
Quarter: 2012Q4

REPORT INFORMATION
  Report Type: 
  Country: US (occurrence: US)
  Receive Date: 20120820
  Receipt Date: 20121213
  Transmission Date: 20130627
  Serious: Yes (Hospitalization)
  Sender: FDA-Public Use
  Company Number: US-GENZYME-THYM-1003373

PATIENT
  Age: 27 Year
  Sex: Female
  Weight: 69.66 kg

DRUGS (29)
  1. THYMOGLOBULIN [Suspect]
     Indication: TRANSPLANT REJECTION
     Dosage: UNK
     Route: 065
     Dates: start: 20111019, end: 20111029
  2. PROGRAF [Concomitant]
     Indication: PRODUCT USED FOR UNKNOWN INDICATION
     Dosage: 9 mg, qd (5 mg morning, 4 mg evening)
     Route: 048
  3. CELLCEPT [Concomitant]
     Indication: PRODUCT USED FOR UNKNOWN INDICATION
     Dosage: 500 mg, bid
     Route: 048
  4. COREG [Concomitant]
     Indication: PRODUCT USED FOR UNKNOWN INDICATION
     Dosage: 6.25 mg, bid
     Route: 048
     Dates: start: 20111024
  5. TOPAMAX [Concomitant]
     Indication: PRODUCT USED FOR UNKNOWN INDICATION
     Dosage: 50 mg, bid
     Route: 048
     Dates: start: 20110412
  6. ULERA [Concomitant]
     Indication: PRODUCT USED FOR UNKNOWN INDICATION
     Dosage: 1 puff, bid
     Route: 065
  7. PREDNISONE [Concomitant]
     Indication: PRODUCT USED FOR UNKNOWN INDICATION
     Dosage: 5 mg, qd
     Route: 065
  8. BACTRIM [Concomitant]
     Indication: PRODUCT USED FOR UNKNOWN INDICATION
     Dosage: 480 mg, Mon, Wed, Fri
     Route: 048
     Dates: start: 20111024
  9. LEXAPRO [Concomitant]
     Indication: PRODUCT USED FOR UNKNOWN INDICATION
     Dosage: 10 mg, qd
     Route: 048
  10. VITAMIN B12 [Concomitant]
     Indication: PRODUCT USED FOR UNKNOWN INDICATION
     Dosage: 1000 mg, qd
     Route: 048
  11. PEPCID [Concomitant]
     Indication: PRODUCT USED FOR UNKNOWN INDICATION
     Dosage: 20 mg, qd
     Route: 048
     Dates: start: 20111024
  12. SYNTHROID [Concomitant]
     Indication: PRODUCT USED FOR UNKNOWN INDICATION
     Dosage: 50 mcg, qd
     Route: 048
  13. PLAQUENIL [Concomitant]
     Indication: PRODUCT USED FOR UNKNOWN INDICATION
     Dosage: 200 mg, bid
     Route: 048
     Dates: start: 20110412
  14. MIRALAX [Concomitant]
     Indication: CONSTIPATION
     Dosage: 17 g, prn
     Route: 048
     Dates: start: 20111024
  15. ZOFRAN [Concomitant]
     Indication: PRODUCT USED FOR UNKNOWN INDICATION
     Dosage: 4 mg, prn
     Route: 048
  16. PERCOCET [Concomitant]
     Indication: PRODUCT USED FOR UNKNOWN INDICATION
     Dosage: 10/325, every 6 hours, prn
     Route: 048
  17. ERGOCALCIFEROL [Concomitant]
     Indication: PRODUCT USED FOR UNKNOWN INDICATION
     Dosage: 50000 U, q2w
     Route: 048
     Dates: start: 20110412
  18. VENTOLIN HFA [Concomitant]
     Indication: WHEEZING
     Dosage: 2 puffs, every 6 hours, prn
     Route: 065
     Dates: start: 20110412
  19. VENTOLIN HFA [Concomitant]
     Indication: DYSPNOEA
  20. SOLU-MEDROL [Concomitant]
     Indication: PRODUCT USED FOR UNKNOWN INDICATION
     Dosage: 250 mg, once
     Route: 042
     Dates: start: 20120809, end: 20120809
  21. MORPHINE [Concomitant]
     Indication: PAIN
     Dosage: 4 mg, prn
     Route: 042
  22. VALCYTE [Concomitant]
     Indication: PRODUCT USED FOR UNKNOWN INDICATION
     Dosage: 225 mg, qd
     Route: 048
  23. TYLENOL [Concomitant]
     Indication: PREMEDICATION
     Dosage: 650 mg, once
     Route: 048
  24. VELCADE [Concomitant]
     Indication: PRODUCT USED FOR UNKNOWN INDICATION
     Dosage: 1.3 mg/m2, once
     Route: 042
     Dates: start: 20120808, end: 20120808
  25. BENADRYL [Concomitant]
     Indication: PRODUCT USED FOR UNKNOWN INDICATION
     Dosage: 25 mg, once
     Route: 048
     Dates: start: 20120808, end: 20120808
  26. SUBLIMAZE [Concomitant]
     Indication: PRODUCT USED FOR UNKNOWN INDICATION
     Dosage: 100 mcg, once
     Route: 042
     Dates: start: 20120807, end: 20120807
  27. SUBLIMAZE [Concomitant]
     Dosage: 50 mcg, once
     Route: 042
     Dates: start: 20120808, end: 20120808
  28. VERSED [Concomitant]
     Indication: PRODUCT USED FOR UNKNOWN INDICATION
     Dosage: 2 mg, once
     Route: 042
  29. RITUXAN [Concomitant]
     Indication: PRODUCT USED FOR UNKNOWN INDICATION
     Dosage: 642 mg in 0.9% NaCl, once
     Route: 042
     Dates: start: 20120808, end: 20120808

REACTIONS (2)
  - Antibody test positive [Not Recovered/Not Resolved]
  - Proteinuria [Recovered/Resolved]
